FAERS Safety Report 9330552 (Version 2)
Quarter: 2013Q2

REPORT INFORMATION
  Report Type: Report from Study
  Country: BR (occurrence: BR)
  Receive Date: 20130605
  Receipt Date: 20130617
  Transmission Date: 20140414
  Serious: Yes (Hospitalization, Other)
  Sender: FDA-Public Use
  Company Number: PHHO2013BR007356

PATIENT
  Age: 61 Year
  Sex: Male
  Weight: 68.5 kg

DRUGS (2)
  1. MYCOPHENOLIC ACID [Suspect]
     Indication: RENAL TRANSPLANT
     Dosage: 360 MG, BID
     Route: 048
     Dates: start: 20130429
  2. SIMULECT [Suspect]
     Indication: RENAL TRANSPLANT
     Dosage: 20 MG, ONCE/SINGLE
     Route: 042
     Dates: start: 20130428, end: 20130502

REACTIONS (2)
  - Pyelonephritis acute [Not Recovered/Not Resolved]
  - Acute sinusitis [Not Recovered/Not Resolved]
